FAERS Safety Report 8972427 (Version 1)
Quarter: 2012Q4

REPORT INFORMATION
  Report Type: Report from Study
  Country: US (occurrence: US)
  Receive Date: 20121218
  Receipt Date: 20121218
  Transmission Date: 20130627
  Serious: Yes (Death)
  Sender: FDA-Public Use
  Company Number: US-ROCHE-1169638

PATIENT
  Age: 65 Year
  Sex: Male
  Weight: 114 kg

DRUGS (6)
  1. BEVACIZUMAB [Suspect]
     Indication: COLORECTAL CANCER METASTATIC
     Route: 042
     Dates: start: 20120208, end: 20120208
  2. BEVACIZUMAB [Suspect]
     Route: 042
     Dates: start: 20121031, end: 20121031
  3. OXALIPLATIN [Suspect]
     Indication: COLORECTAL CANCER METASTATIC
     Route: 042
     Dates: start: 20120208, end: 20120208
  4. OXALIPLATIN [Suspect]
     Route: 042
     Dates: start: 20121031, end: 20121031
  5. IRINOTECAN [Suspect]
     Indication: COLORECTAL CANCER METASTATIC
     Route: 042
     Dates: start: 20120208, end: 20120208
  6. IRINOTECAN [Suspect]
     Route: 042
     Dates: start: 20121031, end: 20121031

REACTIONS (1)
  - Sudden death [Fatal]
